FAERS Safety Report 7090806-5 (Version None)
Quarter: 2010Q4

REPORT INFORMATION
  Report Type: 
  Country: None (occurrence: None)
  Receive Date: 20101012
  Receipt Date: 20100811
  Transmission Date: 20110411
  Serious: No
  Sender: FDA-Public Use
  Company Number: US_001141

PATIENT
  Sex: Female
  Weight: 51 kg

DRUGS (11)
  1. KUVAN [Suspect]
     Indication: PHENYLKETONURIA
     Dosage: SEE IMAGE, ORAL
     Route: 048
     Dates: start: 20091130, end: 20100101
  2. KUVAN [Suspect]
     Indication: PHENYLKETONURIA
     Dosage: SEE IMAGE, ORAL
     Route: 048
     Dates: start: 20100101, end: 20100201
  3. KUVAN [Suspect]
     Indication: PHENYLKETONURIA
     Dosage: SEE IMAGE, ORAL
     Route: 048
     Dates: start: 20100201, end: 20100601
  4. KUVAN [Suspect]
     Indication: PHENYLKETONURIA
     Dosage: SEE IMAGE, ORAL
     Route: 048
     Dates: start: 20100601, end: 20100802
  5. KUVAN [Suspect]
     Indication: PHENYLKETONURIA
     Dosage: SEE IMAGE, ORAL
     Route: 048
     Dates: start: 20100802
  6. TOXEX SPAG [Concomitant]
  7. CRYSELLE [Concomitant]
  8. OTHER MINERAL SUPPLEMENTS [Concomitant]
  9. ANTIPARASITIC PRODUCTS, INSECTICIDES AND REPEL [Concomitant]
  10. NORATAK [Concomitant]
  11. OTHER NUTRIENTS [Concomitant]

REACTIONS (14)
  - ANXIETY [None]
  - EMOTIONAL DISORDER [None]
  - EUPHORIC MOOD [None]
  - FEAR [None]
  - FEELING ABNORMAL [None]
  - FEELING HOT [None]
  - FEELING JITTERY [None]
  - FLUSHING [None]
  - IRRITABILITY [None]
  - NERVOUSNESS [None]
  - PSYCHOMOTOR HYPERACTIVITY [None]
  - SOMNOLENCE [None]
  - TENSION [None]
  - TREMOR [None]
